FAERS Safety Report 24452814 (Version 1)
Quarter: 2024Q4

REPORT INFORMATION
  Report Type: Spontaneous
  Country: US (occurrence: US)
  Receive Date: 20241017
  Receipt Date: 20241017
  Transmission Date: 20250115
  Serious: No
  Sender: SUNOVION
  Company Number: US-UROVANT SCIENCES GMBH-202404-URV-000484

PATIENT
  Sex: Female
  Weight: 131.97 kg

DRUGS (1)
  1. GEMTESA [Suspect]
     Active Substance: VIBEGRON
     Indication: Nocturia
     Dosage: 1 TAB, QD
     Route: 065
     Dates: start: 202403

REACTIONS (1)
  - Drug ineffective [Unknown]
